FAERS Safety Report 4795669-6 (Version None)
Quarter: 2005Q4

REPORT INFORMATION
  Report Type: 
  Country: None (occurrence: None)
  Receive Date: 20051007
  Receipt Date: 20051007
  Transmission Date: 20060501
  Serious: Yes (Disabling)
  Sender: FDA-Public Use
  Company Number: None

PATIENT
  Age: 52 Year
  Sex: Female
  Weight: 65.7716 kg

DRUGS (1)
  1. ZICAM [Suspect]

REACTIONS (3)
  - AGEUSIA [None]
  - ANOSMIA [None]
  - PAROSMIA [None]
